FAERS Safety Report 7287552-1 (Version None)
Quarter: 2011Q1

REPORT INFORMATION
  Report Type: 
  Country: None (occurrence: None)
  Receive Date: 20110208
  Receipt Date: 20110208
  Transmission Date: 20110831
  Serious: Yes (Life-Threatening, Other)
  Sender: FDA-Public Use
  Company Number: None

PATIENT
  Age: 42 Year
  Sex: Female
  Weight: 77.5 kg

DRUGS (1)
  1. AMBIEN [Suspect]
     Dosage: 5 MG ONCE ONLY
     Dates: start: 20100203, end: 20110203

REACTIONS (1)
  - CARDIO-RESPIRATORY ARREST [None]
